FAERS Safety Report 12168362 (Version 2)
Quarter: 2016Q4

REPORT INFORMATION
  Report Type: Report from Study
  Country: JP (occurrence: JP)
  Receive Date: 20160310
  Receipt Date: 20161027
  Transmission Date: 20170207
  Serious: Yes (Hospitalization, Other)
  Sender: FDA-Public Use
  Company Number: JP-AMGEN-JPNNI2016029736

PATIENT
  Age: 91 Year
  Sex: Male

DRUGS (3)
  1. DARBEPOETIN ALFA [Suspect]
     Active Substance: DARBEPOETIN ALFA
     Dosage: UNK
     Route: 042
     Dates: start: 20150907, end: 20151005
  2. DARBEPOETIN ALFA [Suspect]
     Active Substance: DARBEPOETIN ALFA
     Indication: PRODUCT USED FOR UNKNOWN INDICATION
     Dosage: UNK
     Route: 042
     Dates: start: 20150717, end: 20150901
  3. DARBEPOETIN ALFA [Suspect]
     Active Substance: DARBEPOETIN ALFA
     Dosage: UNK
     Route: 042
     Dates: start: 20151012

REACTIONS (11)
  - Arteriovenous fistula site complication [Recovering/Resolving]
  - End stage renal disease [Recovering/Resolving]
  - Cataract [Recovering/Resolving]
  - Cataract [Recovering/Resolving]
  - Arteriovenous fistula site complication [Recovering/Resolving]
  - Neoplasm malignant [Recovering/Resolving]
  - Hospitalisation [Recovering/Resolving]
  - Azotaemia [Recovering/Resolving]
  - Arteriovenous fistula site infection [Recovering/Resolving]
  - Rehabilitation therapy [Recovering/Resolving]
  - Rehabilitation therapy [Recovering/Resolving]

NARRATIVE: CASE EVENT DATE: 20150810
